FAERS Safety Report 5126800-0 (Version None)
Quarter: 2006Q4

REPORT INFORMATION
  Report Type: 
  Country: None (occurrence: None)
  Receive Date: 20061010
  Receipt Date: 20061003
  Transmission Date: 20070319
  Serious: Yes (Death)
  Sender: FDA-Public Use
  Company Number: 163-20785-06100123

PATIENT
  Age: 20 Year
  Sex: Male

DRUGS (1)
  1. THALOMID [Suspect]
     Indication: DRUG USE FOR UNKNOWN INDICATION
     Dosage: 400 MG,  8 IN 1 D, ORAL
     Route: 048
     Dates: start: 20021206, end: 20030101

REACTIONS (1)
  - GRAFT VERSUS HOST DISEASE [None]
